FAERS Safety Report 8340738-7 (Version None)
Quarter: 2012Q2

REPORT INFORMATION
  Report Type: 
  Country: None (occurrence: None)
  Receive Date: 20120507
  Receipt Date: 20120425
  Transmission Date: 20120825
  Serious: Yes (Other)
  Sender: FDA-Public Use
  Company Number: US-BIOGENIDEC-2011BI039936

PATIENT
  Age: 60 Year
  Sex: Female

DRUGS (8)
  1. AMPYRA [Concomitant]
     Indication: GAIT DISTURBANCE
     Dates: start: 20101013
  2. AMPYRA [Concomitant]
     Dates: start: 20110101, end: 20110401
  3. AVONEX [Suspect]
     Route: 030
     Dates: start: 20030101
  4. AMPYRA [Concomitant]
     Dates: start: 20110101, end: 20110401
  5. AVONEX [Suspect]
     Indication: MULTIPLE SCLEROSIS
     Route: 030
     Dates: start: 19980801, end: 20030101
  6. AMPYRA [Concomitant]
     Dates: start: 20110101
  7. AMPYRA [Concomitant]
     Indication: BALANCE DISORDER
     Dates: start: 20101013
  8. AMPYRA [Concomitant]
     Dates: start: 20110101

REACTIONS (3)
  - NODULE [None]
  - BREAST CANCER [None]
  - NUCLEAR MAGNETIC RESONANCE IMAGING BREAST ABNORMAL [None]
